FAERS Safety Report 7398385-X (Version None)
Quarter: 2011Q2

REPORT INFORMATION
  Report Type: 
  Country: None (occurrence: None)
  Receive Date: 20110406
  Receipt Date: 20090323
  Transmission Date: 20111010
  Serious: Yes (Hospitalization, Other)
  Sender: FDA-Public Use
  Company Number: US-BAYER-200916316NA

PATIENT
  Sex: Male
  Weight: 72.109 kg

DRUGS (14)
  1. TRASYLOL [Suspect]
     Indication: CORONARY ARTERY BYPASS
     Dosage: 200 ML LOADING DOSE FOLLOWED BY 50 ML / HOUR DRIP
     Route: 042
     Dates: start: 20030613, end: 20030613
  2. MONOPRIL [Concomitant]
     Dosage: 10-20MG DAILY
     Route: 048
     Dates: end: 20030613
  3. HEPARIN [Concomitant]
     Dosage: 5500 U, UNK
     Route: 042
     Dates: start: 20030613, end: 20030613
  4. IBUPROFEN [Concomitant]
     Dosage: 600 MG, PRN
     Route: 048
  5. SUCCINYLCHOLINE CHLORIDE [Concomitant]
     Dosage: 80 MG, UNK
     Route: 042
     Dates: start: 20030613, end: 20030613
  6. DOBUTAMINE HCL [Concomitant]
     Dosage: 3MCG/KILOGRAM/MINUTE
     Route: 042
     Dates: start: 20030613
  7. NITROGLYCERIN [Concomitant]
     Dosage: 10MCG/MINUTE
     Route: 042
     Dates: start: 20030613
  8. HYDROCHLOROTHIAZIDE [Concomitant]
     Dosage: 25 MG, QD
     Route: 048
     Dates: end: 20030730
  9. SOLU-MEDROL [Concomitant]
     Dosage: 125 MG, UNK
     Route: 042
     Dates: start: 20030613, end: 20030613
  10. NEXIUM [Concomitant]
     Dosage: 40 MG, QD
     Route: 048
  11. VERSED [Concomitant]
     Dosage: 5 MG, UNK
     Route: 042
     Dates: start: 20030613, end: 20030613
  12. ROCURONIUM [Concomitant]
     Dosage: UNK
     Route: 042
     Dates: start: 20030613, end: 20030613
  13. ANCEF [Concomitant]
     Dosage: 1 G, UNK
     Route: 042
     Dates: start: 20030613, end: 20030613
  14. RED BLOOD CELLS [Concomitant]
     Dosage: 2 U, UNK
     Dates: start: 20030613

REACTIONS (13)
  - RENAL INJURY [None]
  - ANHEDONIA [None]
  - MULTI-ORGAN FAILURE [None]
  - DEPRESSION [None]
  - EMOTIONAL DISTRESS [None]
  - INJURY [None]
  - RENAL FAILURE [None]
  - ANXIETY [None]
  - FEAR [None]
  - STRESS [None]
  - PAIN [None]
  - RENAL IMPAIRMENT [None]
  - UNEVALUABLE EVENT [None]
